FAERS Safety Report 4820629-6 (Version None)
Quarter: 2005Q4

REPORT INFORMATION
  Report Type: 
  Country: None (occurrence: None)
  Receive Date: 20051104
  Receipt Date: 20051019
  Transmission Date: 20060501
  Serious: Yes (Hospitalization)
  Sender: FDA-Public Use
  Company Number: 2005JP001928

PATIENT
  Age: 74 Year
  Sex: Female

DRUGS (10)
  1. CEFAZOLIN [Suspect]
     Indication: NASOPHARYNGITIS
     Dosage: 12G UNKNOWN
     Route: 042
     Dates: start: 20050312, end: 20050314
  2. CEFCAPENE PIVOXIL HYDROCHLORIDE [Suspect]
     Indication: NASOPHARYNGITIS
     Dosage: 300MG PER DAY
     Route: 048
     Dates: start: 20050310, end: 20050318
  3. IMIPENEM + CILASTATIN [Suspect]
     Indication: DRUG USE FOR UNKNOWN INDICATION
     Dosage: .5MG TWICE PER DAY
     Route: 042
     Dates: start: 20050319, end: 20050322
  4. OSELTAMIVIR PHOSPHATE [Concomitant]
     Indication: DRUG USE FOR UNKNOWN INDICATION
     Dosage: 150MG PER DAY
     Route: 048
     Dates: start: 20050314, end: 20050318
  5. ZOPICLONE [Concomitant]
     Route: 048
     Dates: start: 20050307, end: 20050318
  6. FERROUS CITRATE [Concomitant]
     Route: 048
     Dates: start: 20050303, end: 20050318
  7. LOXOPROFEN SODIUM [Concomitant]
     Route: 048
     Dates: start: 20050310, end: 20050318
  8. FAMOTIDINE [Concomitant]
     Route: 048
     Dates: start: 20050310, end: 20050318
  9. BIOFERMIN [Concomitant]
     Route: 065
     Dates: start: 20050318, end: 20050318
  10. DOMPERIDONE [Concomitant]
     Route: 048
     Dates: start: 20050318, end: 20050318

REACTIONS (6)
  - BLOOD PRESSURE DECREASED [None]
  - CLOSTRIDIUM COLITIS [None]
  - DEPRESSED LEVEL OF CONSCIOUSNESS [None]
  - DIARRHOEA [None]
  - DISSEMINATED INTRAVASCULAR COAGULATION [None]
  - PYREXIA [None]
